FAERS Safety Report 8248271-8 (Version None)
Quarter: 2012Q1

REPORT INFORMATION
  Report Type: 
  Country: None (occurrence: None)
  Receive Date: 20120330
  Receipt Date: 20120320
  Transmission Date: 20120608
  Serious: Yes (Hospitalization)
  Sender: FDA-Public Use
  Company Number: US-ABBOTT-12P-163-0918993-00

PATIENT
  Sex: Male
  Weight: 73.548 kg

DRUGS (5)
  1. DEPAKOTE ER [Suspect]
     Indication: BIPOLAR DISORDER
     Dosage: 500 MG IN AM + 1000 MG AT NIGHT DAILY
     Dates: start: 20040301
  2. INDERAL [Concomitant]
     Indication: BIPOLAR DISORDER
     Dates: start: 20110901
  3. UNKNOWN MEDICATION [Suspect]
     Indication: PRODUCT USED FOR UNKNOWN INDICATION
  4. LITHIUM CARBONATE [Concomitant]
     Indication: BIPOLAR DISORDER
  5. INVEJA [Concomitant]
     Indication: BIPOLAR DISORDER

REACTIONS (2)
  - TREMOR [None]
  - HOSPITALISATION [None]
